FAERS Safety Report 5626496-5 (Version None)
Quarter: 2008Q1

REPORT INFORMATION
  Report Type: 
  Country: None (occurrence: None)
  Receive Date: 20080211
  Receipt Date: 20071205
  Transmission Date: 20080703
  Serious: Yes (Hospitalization)
  Sender: FDA-Public Use
  Company Number: 2007JP002462

PATIENT
  Sex: Female
  Weight: 60 kg

DRUGS (12)
  1. PROGRAF [Suspect]
     Indication: RHEUMATOID ARTHRITIS
     Dosage: 3 MG, UID/QD, ORAL
     Route: 048
     Dates: start: 20051027, end: 20070306
  2. ENBREL [Suspect]
     Indication: RHEUMATOID ARTHRITIS
     Dosage: 50 MG, WEEKLY, SUBCUTANEOUS
     Route: 058
     Dates: start: 20061130, end: 20070301
  3. PREDNISOLONE [Suspect]
     Indication: RHEUMATOID ARTHRITIS
     Dosage: 25 MG, UID/QD, ORAL
     Route: 048
     Dates: end: 20070306
  4. VOLTAREN [Suspect]
     Indication: RHEUMATOID ARTHRITIS
     Dosage: 25 MG, UID/QD, RECTAL
     Route: 048
     Dates: end: 20070306
  5. ETODOLAC [Suspect]
     Indication: RHEUMATOID ARTHRITIS
     Dosage: 400 MG, UID/QD,ORAL
     Dates: end: 20070306
  6. METHOTREXATE [Suspect]
     Indication: RHEUMATOID ARTHRITIS
     Dosage: ORAL
     Route: 048
     Dates: end: 20070306
  7. ISCOTIN(ISONIAZIO) PER ORAL NOS [Suspect]
     Indication: RHEUMATOID ARTHRITIS
     Dosage: 400 MG, UID/QD, ORAL
     Route: 048
     Dates: start: 20070420
  8. FOLIC ACID [Concomitant]
  9. KOLANTYL (DICYCLOVERINE HYDROCHLORIDE, METHYLCELLULOSE, MAGNESIUM OXID [Concomitant]
  10. DIOVAN [Concomitant]
  11. ONE-ALPHA (ALFACALCIDOL) [Concomitant]
  12. FAMOTIDINE [Concomitant]

REACTIONS (7)
  - DYSPNOEA [None]
  - HEPATITIS B [None]
  - HEPATORENAL SYNDROME [None]
  - MALAISE [None]
  - OEDEMA PERIPHERAL [None]
  - URINE OUTPUT DECREASED [None]
  - WEIGHT INCREASED [None]
